FAERS Safety Report 9664738 (Version 1)
Quarter: 2013Q4

REPORT INFORMATION
  Report Type: Spontaneous
  Country: NL (occurrence: None)
  Receive Date: 20131031
  Receipt Date: 20131031
  Transmission Date: 20140711
  Serious: Yes (Hospitalization)
  Sender: FDA-Public Use
  Company Number: VAL_02789_2013

PATIENT
  Sex: Male

DRUGS (7)
  1. METOPROLOL (METOPROLOL-METOPROLOL TARTRATE) [Suspect]
     Indication: PRODUCT USED FOR UNKNOWN INDICATION
     Dates: start: 2013
  2. CARBAMAZEPINE [Suspect]
     Indication: TRIGEMINAL NEURALGIA
     Route: 048
     Dates: start: 2013, end: 20131017
  3. LYRICA (UNKNOWN) [Concomitant]
  4. PARACETAMOL (UNKNOWN) [Concomitant]
  5. TRAMADOL (UNKNOWN) [Concomitant]
  6. SIMVASTATIN (UNKNOWN) [Suspect]
  7. AMLODIPINEW/HYDROCHLORTHIAZIDE/VALSARTAN (UNKNOWN) [Concomitant]

REACTIONS (3)
  - Sinus bradycardia [None]
  - Sinus arrest [None]
  - Fall [None]
